FAERS Safety Report 4335437-2 (Version None)
Quarter: 2004Q2

REPORT INFORMATION
  Report Type: 
  Country: None (occurrence: None)
  Receive Date: 20040408
  Receipt Date: 20040408
  Transmission Date: 20050107
  Serious: Yes (Death)
  Sender: FDA-Public Use
  Company Number: None

PATIENT
  Sex: Male

DRUGS (7)
  1. ENOXAPARIN SODIUM [Suspect]
     Dosage: 95 MG Q12H SUBCUTANEOUS
     Route: 058
     Dates: start: 20040331, end: 20040406
  2. TEGRETOL [Concomitant]
  3. TOPROL-XL [Concomitant]
  4. ALTACE [Concomitant]
  5. ASPIRIN [Concomitant]
  6. SIMVASTATIN [Concomitant]
  7. IMDUR [Concomitant]

REACTIONS (2)
  - BRAIN DEATH [None]
  - THALAMUS HAEMORRHAGE [None]
